FAERS Safety Report 17856873 (Version 1)
Quarter: 2020Q2

REPORT INFORMATION
  Report Type: Spontaneous
  Country: CA (occurrence: CA)
  Receive Date: 20200603
  Receipt Date: 20200603
  Transmission Date: 20200714
  Serious: Yes (Other)
  Sender: FDA-Public Use
  Company Number: CA-AMERICAN REGENT INC-2020001159

PATIENT
  Sex: Female

DRUGS (1)
  1. VENOFER [Suspect]
     Active Substance: IRON SUCROSE
     Indication: BLOOD IRON DECREASED
     Dosage: 200 MILLIGRAM, 1 EVERY 1 MONTH

REACTIONS (6)
  - Asthenia [Unknown]
  - Nausea [Unknown]
  - Tremor [Unknown]
  - Dysgeusia [Unknown]
  - Vomiting [Unknown]
  - Dyspepsia [Unknown]
